FAERS Safety Report 4469282-4 (Version None)
Quarter: 2004Q4

REPORT INFORMATION
  Report Type: 
  Country: None (occurrence: None)
  Receive Date: 20041008
  Receipt Date: 20030905
  Transmission Date: 20050328
  Serious: No
  Sender: FDA-Public Use
  Company Number: US-BRISTOL-MYERS SQUIBB COMPANY-12374674

PATIENT
  Age: 72 Year
  Sex: Male
  Weight: 113 kg

DRUGS (6)
  1. AVAPRO [Suspect]
     Indication: HYPERTENSION
     Route: 048
     Dates: start: 20030801, end: 20030801
  2. VASOTEC [Concomitant]
  3. MINOXIDIL [Concomitant]
  4. HYDROCHLOROTHIAZIDE [Concomitant]
  5. XANAX [Concomitant]
  6. ZYRTEC [Concomitant]

REACTIONS (2)
  - EAR PAIN [None]
  - VISION BLURRED [None]
